FAERS Safety Report 5673916-6 (Version None)
Quarter: 2008Q2

REPORT INFORMATION
  Report Type: 
  Country: None (occurrence: None)
  Receive Date: 20080226
  Receipt Date: 20080116
  Transmission Date: 20081010
  Serious: Yes (Hospitalization)
  Sender: FDA-Public Use
  Company Number: US-JNJFOC-2008101439

PATIENT
  Age: 59 Year
  Sex: Female

DRUGS (2)
  1. DACOGEN [Suspect]
     Indication: OVARIAN CANCER
     Dosage: 21.7 MG, 1 IN 5 WEEK, INTRAVENOUS
     Route: 042
     Dates: start: 20071029
  2. CARBOPLATIN [Suspect]
     Indication: OVARIAN CANCER
     Dosage: 426 MG, 1 IN 4 WEEK, INTRAVENOUS
     Route: 042
     Dates: start: 20071105

REACTIONS (1)
  - PYREXIA [None]
